FAERS Safety Report 22809635 (Version 2)
Quarter: 2024Q4

REPORT INFORMATION
  Report Type: Spontaneous
  Country: US (occurrence: US)
  Receive Date: 20230810
  Receipt Date: 20241018
  Transmission Date: 20250114
  Serious: No
  Sender: SANDOZ
  Company Number: US-002147023-NVSC2023US149011

PATIENT
  Sex: Male

DRUGS (6)
  1. CLOBETASOL [Suspect]
     Active Substance: CLOBETASOL
     Indication: Psoriasis
     Dosage: UNK
     Route: 065
  2. COSENTYX [Suspect]
     Active Substance: SECUKINUMAB
     Indication: Psoriasis
     Dosage: UNK
     Route: 058
  3. LOSARTAN [Suspect]
     Active Substance: LOSARTAN
     Indication: Psoriasis
     Dosage: UNK
     Route: 065
  4. ROSUVASTATIN [Suspect]
     Active Substance: ROSUVASTATIN
     Indication: Psoriasis
     Dosage: UNK
     Route: 065
  5. ROSUVASTATIN [Suspect]
     Active Substance: ROSUVASTATIN
     Indication: Psoriasis
     Dosage: UNK
     Route: 065
  6. SERTRALINE [Suspect]
     Active Substance: SERTRALINE HYDROCHLORIDE
     Indication: Psoriasis
     Dosage: UNKNOWN
     Route: 065

REACTIONS (15)
  - Psoriasis [Unknown]
  - Seborrhoeic keratosis [Unknown]
  - Sebaceous hyperplasia [Unknown]
  - Skin lesion inflammation [Unknown]
  - Skin plaque [Unknown]
  - Skin irritation [Unknown]
  - Pigmentation disorder [Unknown]
  - Pruritus [Unknown]
  - Erythema [Unknown]
  - Papule [Unknown]
  - Telangiectasia [Unknown]
  - Acrochordon [Unknown]
  - Skin lesion [Unknown]
  - Product use in unapproved indication [Unknown]
  - Drug ineffective [Unknown]
